FAERS Safety Report 8973574 (Version 1)
Quarter: 2012Q4

REPORT INFORMATION
  Report Type: 
  Country: US (occurrence: US)
  Receive Date: 20121218
  Receipt Date: 20121218
  Transmission Date: 20130627
  Serious: No
  Sender: FDA-Public Use
  Company Number: US-BRISTOL-MYERS SQUIBB COMPANY-16420242

PATIENT
  Age: 42 Year
  Sex: Female

DRUGS (8)
  1. ABILIFY TABS 10 MG [Suspect]
     Indication: BIPOLAR DISORDER
     Dosage: Reduced to 2mg then increased to 5mg,then 10mg
     Route: 048
     Dates: start: 20120223, end: 20120423
  2. FOLIC ACID [Concomitant]
  3. PRISTIQ [Concomitant]
  4. SEROQUEL [Concomitant]
  5. LISINOPRIL [Concomitant]
  6. XANAX [Concomitant]
  7. B COMPLEX 100 [Concomitant]
  8. ALPRAZOLAM [Concomitant]

REACTIONS (15)
  - Tachycardia [Unknown]
  - Blood pressure increased [Unknown]
  - Oedema peripheral [Unknown]
  - Feeling jittery [Unknown]
  - Eye swelling [Unknown]
  - Dry eye [Unknown]
  - Vision blurred [Unknown]
  - Menstruation irregular [Unknown]
  - Fibroadenoma of breast [Unknown]
  - Pain in extremity [Unknown]
  - Muscle spasms [Recovered/Resolved]
  - Abnormal dreams [Recovered/Resolved]
  - Poor quality sleep [Recovered/Resolved]
  - Breast enlargement [Recovered/Resolved]
  - Breast pain [Recovered/Resolved]
